FAERS Safety Report 14752259 (Version 1)
Quarter: 2018Q2

REPORT INFORMATION
  Report Type: Report from Study
  Country: DE (occurrence: DE)
  Receive Date: 20180412
  Receipt Date: 20180412
  Transmission Date: 20180711
  Serious: Yes (Hospitalization)
  Sender: FDA-Public Use
  Company Number: DE-PFIZER INC-2018143028

PATIENT
  Age: 76 Year
  Sex: Female
  Weight: 53 kg

DRUGS (11)
  1. L THYROXIN [Concomitant]
     Active Substance: LEVOTHYROXINE SODIUM
     Dosage: 100 UG, UNK
     Route: 065
     Dates: start: 19870101
  2. PREDNISOLONE. [Concomitant]
     Active Substance: PREDNISOLONE
     Dosage: 2.5 G, UNK
     Route: 065
     Dates: start: 20130101
  3. PERTUZUMAB. [Suspect]
     Active Substance: PERTUZUMAB
     Dosage: DATE OF LAST DOSE PRIOR TO FIRST EPISODE OF ANEMIA: 14NOV2017
     Route: 042
     Dates: end: 20171114
  4. PERTUZUMAB. [Suspect]
     Active Substance: PERTUZUMAB
     Indication: BREAST CANCER METASTATIC
     Dosage: 840 MG, LOADING DOSE
     Route: 042
  5. TRASTUZUMAB. [Suspect]
     Active Substance: TRASTUZUMAB
     Dosage: 6 MG/KG, EVERY 3 WEEKS
     Route: 042
     Dates: start: 20180104
  6. PERTUZUMAB. [Suspect]
     Active Substance: PERTUZUMAB
     Dosage: 420 MG, EVERY 3 WEEKS
     Route: 042
     Dates: start: 20180104
  7. ZOLPIDEM [Concomitant]
     Active Substance: ZOLPIDEM\ZOLPIDEM TARTRATE
     Dosage: UNK
     Route: 065
     Dates: start: 20130101
  8. TRASTUZUMAB. [Suspect]
     Active Substance: TRASTUZUMAB
     Dosage: 381 MG, EVERY 3 WEEKS, MAINTAINANCE DOSEDATE OF LAST DOSE PRIOR TO FIRST EPISODE OF ANEMIA:14NOV2017
     Route: 042
     Dates: end: 20171114
  9. TRASTUZUMAB. [Suspect]
     Active Substance: TRASTUZUMAB
     Indication: BREAST CANCER METASTATIC
     Dosage: 8 MG/KG, LOADING DOSE
     Route: 042
     Dates: start: 20171024
  10. TAZOBAC [Suspect]
     Active Substance: PIPERACILLIN SODIUM\TAZOBACTAM SODIUM
     Dosage: UNK
     Route: 065
  11. DEKRISTOL [Concomitant]
     Active Substance: CHOLECALCIFEROL
     Dosage: 20000 MG, UNK
     Route: 065
     Dates: start: 20130101

REACTIONS (4)
  - Anaemia [Unknown]
  - Anaemia [Recovered/Resolved]
  - Fatigue [Not Recovered/Not Resolved]
  - Liver abscess [Recovered/Resolved]

NARRATIVE: CASE EVENT DATE: 20171121
